FAERS Safety Report 5886566-3 (Version None)
Quarter: 2008Q3

REPORT INFORMATION
  Report Type: 
  Country: None (occurrence: None)
  Receive Date: 20080917
  Receipt Date: 20080904
  Transmission Date: 20090109
  Serious: Yes (Death, Hospitalization)
  Sender: FDA-Public Use
  Company Number: FR-GENENTECH-267148

PATIENT
  Sex: Male

DRUGS (12)
  1. BLINDED BEVACIZUMAB [Suspect]
     Indication: DIFFUSE LARGE B-CELL LYMPHOMA
     Dosage: 1025 MG, 1/MONTH
     Route: 042
     Dates: start: 20080710
  2. CYCLOPHOSPHAMIDE [Suspect]
     Indication: DIFFUSE LARGE B-CELL LYMPHOMA
     Dosage: 1025 MG, 1/MONTH
     Route: 042
     Dates: start: 20080710
  3. DOXORUBICIN HCL [Suspect]
     Indication: DIFFUSE LARGE B-CELL LYMPHOMA
     Dosage: 1025 MG, 1/MONTH
     Route: 042
     Dates: start: 20080710
  4. BLINDED PLACEBO [Suspect]
     Indication: DIFFUSE LARGE B-CELL LYMPHOMA
     Dosage: 1025 MG, 1/MONTH
     Route: 042
     Dates: start: 20080710
  5. PREDNISONE TAB [Suspect]
     Indication: DIFFUSE LARGE B-CELL LYMPHOMA
     Dosage: 1025 MG, 1/MONTH
     Route: 042
     Dates: start: 20080710
  6. BLINDED RITUXIMAB [Suspect]
     Indication: DIFFUSE LARGE B-CELL LYMPHOMA
     Dosage: 1025 MG, 1/MONTH
     Route: 042
     Dates: start: 20080710
  7. VINCRISTINE [Suspect]
     Indication: DIFFUSE LARGE B-CELL LYMPHOMA
     Dosage: 1025 MG, 1/MONTH
     Route: 042
     Dates: start: 20080710
  8. RITUXIMAB [Suspect]
     Indication: DIFFUSE LARGE B-CELL LYMPHOMA
     Dosage: 680 MG, 1/MONTH
     Route: 042
     Dates: start: 20080711
  9. CYCLOPHOSPHAMIDE [Suspect]
     Indication: DIFFUSE LARGE B-CELL LYMPHOMA
     Dosage: 1360 MG, 1/MONTH
     Route: 042
     Dates: start: 20080711
  10. VINCRISTINE [Suspect]
     Indication: DIFFUSE LARGE B-CELL LYMPHOMA
     Dosage: 2 MG, UNK
     Route: 042
     Dates: start: 20080711
  11. DOXORUBICIN HCL [Suspect]
     Indication: DIFFUSE LARGE B-CELL LYMPHOMA
     Dosage: 90 MG, 1/MONTH
     Route: 042
     Dates: start: 20080711
  12. PREDNISONE TAB [Suspect]
     Indication: DIFFUSE LARGE B-CELL LYMPHOMA
     Dosage: 100 MG, ^1/DAY X 5 DAY/MONTH^
     Route: 048
     Dates: start: 20080711

REACTIONS (1)
  - GENERAL PHYSICAL HEALTH DETERIORATION [None]
